FAERS Safety Report 24036506 (Version 1)
Quarter: 2024Q2

REPORT INFORMATION
  Report Type: Spontaneous
  Country: US (occurrence: None)
  Receive Date: 20240630
  Receipt Date: 20240630
  Transmission Date: 20240715
  Serious: No
  Sender: FDA-Public Use
  Company Number: None

PATIENT
  Age: 40 Year
  Sex: Female
  Weight: 63 kg

DRUGS (1)
  1. NUVARING [Suspect]
     Active Substance: ETHINYL ESTRADIOL\ETONOGESTREL
     Indication: Contraception
     Dosage: OTHER QUANTITY : 1 NUVARING;?OTHER FREQUENCY : CONSTANT 3 WEEKS;?
     Route: 067
     Dates: start: 20240620

REACTIONS (13)
  - Nausea [None]
  - Headache [None]
  - Fatigue [None]
  - Menstruation irregular [None]
  - Fluid retention [None]
  - Abdominal distension [None]
  - Weight increased [None]
  - Neck pain [None]
  - Uterine pain [None]
  - Constipation [None]
  - Dizziness [None]
  - Asthenia [None]
  - Sleep disorder [None]

NARRATIVE: CASE EVENT DATE: 20240630
